FAERS Safety Report 9031240 (Version 2)
Quarter: 2013Q1

REPORT INFORMATION
  Report Type: Spontaneous
  Country: US (occurrence: US)
  Receive Date: 20130123
  Receipt Date: 20130304
  Transmission Date: 20140127
  Serious: Yes (Other)
  Sender: FDA-Public Use
  Company Number: US-PFIZER INC-2013024154

PATIENT
  Age: 78 Year
  Sex: Female
  Weight: 90 kg

DRUGS (4)
  1. XALATAN [Suspect]
     Indication: EYE DISORDER
     Dosage: 1 GTT EACH EYE, 1X/DAY
     Route: 047
     Dates: start: 2011
  2. HYDROCHLOROTHIAZIDE/LOSARTAN POTASSIUM [Suspect]
     Dosage: 50/12.5 MG, 1X/DAY
     Dates: start: 2011
  3. COREG [Suspect]
     Indication: BRADYCARDIA
     Dosage: 6.25 MG, 2X/DAY
     Dates: start: 2011
  4. COREG [Suspect]
     Indication: CHEST PAIN

REACTIONS (1)
  - Rotator cuff syndrome [Not Recovered/Not Resolved]
